FAERS Safety Report 10052124 (Version 1)
Quarter: 2014Q2

REPORT INFORMATION
  Report Type: Spontaneous
  Country: US (occurrence: None)
  Receive Date: 20140401
  Receipt Date: 20140401
  Transmission Date: 20141212
  Serious: Yes (Other)
  Sender: FDA-Public Use
  Company Number: None

PATIENT
  Sex: Female
  Weight: 56.7 kg

DRUGS (8)
  1. BUSPAR [Suspect]
     Dosage: PER EMAIL WITH KEVIN 4/7/14?4 DRUGS (USE THE DRUG NAMES ONLY AS BELOW)? ?ALL 4 DRUGS HAVE 2 INDICATIONS: NAUSEA AND VOMITING??DRUG 1, 3 AND 4 HAS BOTH ABATED AND REAPPEARED AS YES ?DRUG 2 HAS ABATED AS YES? ?3 BUSPAR?DRUG 3 HAS DOSING (5 MG) AND THERAPY DATE (2011)?
     Dates: start: 2011
  2. BUSPAR [Suspect]
     Dosage: PER EMAIL WITH KEVIN 4/7/14?4 DRUGS (USE THE DRUG NAMES ONLY AS BELOW)? ?ALL 4 DRUGS HAVE 2 INDICATIONS: NAUSEA AND VOMITING??DRUG 1, 3 AND 4 HAS BOTH ABATED AND REAPPEARED AS YES ?DRUG 2 HAS ABATED AS YES? ?3 BUSPAR?DRUG 3 HAS DOSING (5 MG) AND THERAPY DATE (2011)?
     Dates: start: 2011
  3. VIBRYD [Suspect]
     Dosage: PER EMAIL WITH KEVIN 4/7/14?4 DRUGS (USE THE DRUG NAMES ONLY AS BELOW)? ?ALL 4 DRUGS HAVE 2 INDICATIONS: NAUSEA AND VOMITING??DRUG 1, 3 AND 4 HAS BOTH ABATED AND REAPPEARED AS YES ?DRUG 2 HAS ABATED AS YES? ?4 VIBRYD?DRUG 4 HAS THERAPY DATE (2011)??
     Dates: start: 2011
  4. VIBRYD [Suspect]
     Dosage: PER EMAIL WITH KEVIN 4/7/14?4 DRUGS (USE THE DRUG NAMES ONLY AS BELOW)? ?ALL 4 DRUGS HAVE 2 INDICATIONS: NAUSEA AND VOMITING??DRUG 1, 3 AND 4 HAS BOTH ABATED AND REAPPEARED AS YES ?DRUG 2 HAS ABATED AS YES? ?4 VIBRYD?DRUG 4 HAS THERAPY DATE (2011)??
     Dates: start: 2011
  5. EFFEXOR GENERIC [Suspect]
     Dosage: PER EMAIL WITH KEVIN 4/7/14?4 DRUGS (USE THE DRUG NAMES ONLY AS BELOW)?1 EFFEXOR GENERIC--DRUG 1 HAS DOSING (75 MG QD) AND THERAPY DATE (10/25/13-2/28/14)??ALL 4 DRUGS HAVE 2 INDICATIONS: NAUSEA AND VOMITING??DRUG 1, 3 AND 4 HAS BOTH ABATED AND REAPPEARED AS YES ?DRUG 2 HAS ABATED AS YES
     Dates: start: 20131025, end: 20140228
  6. EFFEXOR GENERIC [Suspect]
     Dosage: PER EMAIL WITH KEVIN 4/7/14?4 DRUGS (USE THE DRUG NAMES ONLY AS BELOW)?1 EFFEXOR GENERIC--DRUG 1 HAS DOSING (75 MG QD) AND THERAPY DATE (10/25/13-2/28/14)??ALL 4 DRUGS HAVE 2 INDICATIONS: NAUSEA AND VOMITING??DRUG 1, 3 AND 4 HAS BOTH ABATED AND REAPPEARED AS YES ?DRUG 2 HAS ABATED AS YES
     Dates: start: 20131025, end: 20140228
  7. CELEXA [Suspect]
     Dosage: PER EMAIL WITH KEVIN 4/7/14?4 DRUGS (USE THE DRUG NAMES ONLY AS BELOW)? ?ALL 4 DRUGS HAVE 2 INDICATIONS: NAUSEA AND VOMITING??2 CELEXA?DRUG 1, 3 AND 4 HAS BOTH ABATED AND REAPPEARED AS YES ?DRUG 2 HAS ABATED AS YES? ??DRUG 2 HAS DOSING (20 MG QD) AND THERAPY DATE (2011)?
     Dates: start: 2011
  8. CELEXA [Suspect]
     Dosage: PER EMAIL WITH KEVIN 4/7/14?4 DRUGS (USE THE DRUG NAMES ONLY AS BELOW)? ?ALL 4 DRUGS HAVE 2 INDICATIONS: NAUSEA AND VOMITING??2 CELEXA?DRUG 1, 3 AND 4 HAS BOTH ABATED AND REAPPEARED AS YES ?DRUG 2 HAS ABATED AS YES? ??DRUG 2 HAS DOSING (20 MG QD) AND THERAPY DATE (2011)?
     Dates: start: 2011

REACTIONS (2)
  - Nausea [None]
  - Vomiting [None]
